FAERS Safety Report 7119864-6 (Version None)
Quarter: 2010Q4

REPORT INFORMATION
  Report Type: 
  Country: None (occurrence: None)
  Receive Date: 20101123
  Receipt Date: 20100915
  Transmission Date: 20110411
  Serious: No
  Sender: FDA-Public Use
  Company Number: US-BRISTOL-MYERS SQUIBB COMPANY-15289713

PATIENT

DRUGS (1)
  1. ONGLYZA [Suspect]
     Dosage: 1DF=5 + 2.5 MG.
     Route: 048

REACTIONS (1)
  - HYPERSENSITIVITY [None]
